FAERS Safety Report 10307361 (Version 1)
Quarter: 2014Q3

REPORT INFORMATION
  Report Type: Spontaneous
  Country: US (occurrence: US)
  Receive Date: 20140716
  Receipt Date: 20140716
  Transmission Date: 20150326
  Serious: Yes (Other)
  Sender: FDA-Public Use
  Company Number: US-ASTRAZENECA-2014SE49673

PATIENT
  Age: 51 Year
  Sex: Female

DRUGS (7)
  1. PHENOFIBRATE [Concomitant]
  2. CLARITIN [Concomitant]
     Active Substance: LORATADINE
  3. NAPROXEN. [Concomitant]
     Active Substance: NAPROXEN
     Dosage: PRN
  4. NEXIUM [Suspect]
     Active Substance: ESOMEPRAZOLE MAGNESIUM
     Route: 048
  5. LISINOPRIL. [Suspect]
     Active Substance: LISINOPRIL
     Route: 048
  6. VALTREX [Concomitant]
     Active Substance: VALACYCLOVIR HYDROCHLORIDE
  7. CRESTOR [Suspect]
     Active Substance: ROSUVASTATIN CALCIUM
     Indication: TYPE IIA HYPERLIPIDAEMIA
     Route: 048

REACTIONS (1)
  - Amnesia [Not Recovered/Not Resolved]
